FAERS Safety Report 5995235-0 (Version None)
Quarter: 2008Q4

REPORT INFORMATION
  Report Type: 
  Country: None (occurrence: None)
  Receive Date: 20081212
  Receipt Date: 20080922
  Transmission Date: 20090506
  Serious: No
  Sender: FDA-Public Use
  Company Number: US-ABBOTT-08P-163-0477594-00

PATIENT
  Sex: Female
  Weight: 50.848 kg

DRUGS (6)
  1. HUMIRA [Suspect]
     Indication: RHEUMATOID ARTHRITIS
     Route: 050
     Dates: start: 20080601, end: 20080601
  2. HUMIRA [Suspect]
     Route: 050
     Dates: start: 20080701, end: 20080826
  3. LEVOTHYROXINE SODIUM [Concomitant]
     Indication: BASEDOW'S DISEASE
     Route: 048
  4. ATENOLOL [Concomitant]
     Indication: BLOOD PRESSURE
     Route: 048
  5. PREDNISONE TAB [Concomitant]
     Indication: RHEUMATOID ARTHRITIS
     Route: 048
     Dates: end: 20080921
  6. PREDNISONE TAB [Concomitant]
     Route: 048
     Dates: start: 20080922, end: 20080929

REACTIONS (6)
  - ABDOMINAL DISCOMFORT [None]
  - HAEMOGLOBIN DECREASED [None]
  - INFLUENZA LIKE ILLNESS [None]
  - PERIORBITAL ABSCESS [None]
  - VOMITING [None]
  - WEIGHT DECREASED [None]
